FAERS Safety Report 5758968-7 (Version None)
Quarter: 2008Q2

REPORT INFORMATION
  Report Type: 
  Country: None (occurrence: None)
  Receive Date: 20080602
  Receipt Date: 20080514
  Transmission Date: 20081010
  Serious: Yes (Hospitalization)
  Sender: FDA-Public Use
  Company Number: DSA_31876_2008

PATIENT
  Sex: Male

DRUGS (6)
  1. LORAZEPAM [Suspect]
     Dosage: NOT THE PRESCRIBED AMOUNT, ORAL
     Route: 048
     Dates: start: 20080514, end: 20080514
  2. ESCITALOPRAM [Suspect]
     Dosage: 400 MG 1X , NOT THE PRESCRIBED AMOUNT, ORAL
     Route: 048
     Dates: start: 20080514, end: 20080514
  3. HALDOL [Suspect]
     Dosage: NOT THE PRESCRIBED AMOUNT, ORAL
     Route: 048
     Dates: start: 20080514, end: 20080514
  4. MELLARIL [Suspect]
     Dosage: NOT THE PRESCRIBED AMOUNT, ORAL
     Route: 048
     Dates: start: 20080514, end: 20080514
  5. FLURAZEPAM HCL [Suspect]
     Dosage: NOT THE PRESCRIBED AMOUNT, ORAL
     Route: 048
     Dates: start: 20080514, end: 20080514
  6. ZOPICLONE [Suspect]
     Dosage: NOT THE PRESCRIBED AMOUNT, ORAL
     Route: 048
     Dates: start: 20080514, end: 20080514

REACTIONS (4)
  - MULTIPLE DRUG OVERDOSE INTENTIONAL [None]
  - SOMNOLENCE [None]
  - SUICIDE ATTEMPT [None]
  - TACHYCARDIA [None]
